FAERS Safety Report 15980932 (Version 1)
Quarter: 2019Q1

REPORT INFORMATION
  Report Type: Spontaneous
  Country: DE (occurrence: DE)
  Receive Date: 20190219
  Receipt Date: 20190219
  Transmission Date: 20190418
  Serious: Yes (Other)
  Sender: FDA-Public Use
  Company Number: DE-JNJFOC-20190213869

PATIENT
  Sex: Male

DRUGS (2)
  1. IMBRUVICA [Suspect]
     Active Substance: IBRUTINIB
     Indication: LEUKAEMIA
     Dosage: REDUCED THE DOSE TO HALF THE DOSE
     Route: 065
     Dates: end: 2019
  2. IMBRUVICA [Suspect]
     Active Substance: IBRUTINIB
     Indication: LEUKAEMIA
     Route: 065
     Dates: start: 2019, end: 2019

REACTIONS (4)
  - Candida infection [Unknown]
  - Stomatitis [Unknown]
  - Anal ulcer [Unknown]
  - Leukopenia [Not Recovered/Not Resolved]
